FAERS Safety Report 8877708 (Version 1)
Quarter: 2012Q4

REPORT INFORMATION
  Report Type: 
  Country: US (occurrence: US)
  Receive Date: 20121024
  Receipt Date: 20121024
  Transmission Date: 20130627
  Serious: Yes (Other)
  Sender: FDA-Public Use
  Company Number: US-PFIZER INC-2012263880

PATIENT

DRUGS (3)
  1. ARTHROTEC [Suspect]
     Dosage: UNK
  2. ARTHROTEC [Suspect]
     Dosage: UNK
  3. ARTHROTEC [Suspect]
     Dosage: UNK

REACTIONS (2)
  - Eye haemorrhage [Unknown]
  - Increased tendency to bruise [Unknown]
